FAERS Safety Report 7318626-4 (Version None)
Quarter: 2011Q1

REPORT INFORMATION
  Report Type: 
  Country: None (occurrence: None)
  Receive Date: 20110223
  Receipt Date: 20110223
  Transmission Date: 20110831
  Serious: Yes (Life-Threatening, Hospitalization, Disabling)
  Sender: FDA-Public Use
  Company Number: None

PATIENT
  Age: 57 Year
  Sex: Male
  Weight: 147.419 kg

DRUGS (1)
  1. ACTOS [Suspect]
     Indication: DIABETES MELLITUS
     Dosage: 45MG ONCE A DAY PO
     Route: 048
     Dates: start: 20060610, end: 20101224

REACTIONS (4)
  - RESPIRATORY DISTRESS [None]
  - FEELING ABNORMAL [None]
  - DIABETES MELLITUS INADEQUATE CONTROL [None]
  - CHEST PAIN [None]
